FAERS Safety Report 10574902 (Version 2)
Quarter: 2014Q4

REPORT INFORMATION
  Report Type: Spontaneous
  Country: CO (occurrence: CO)
  Receive Date: 20141110
  Receipt Date: 20141110
  Transmission Date: 20150529
  Serious: Yes (Death)
  Sender: FDA-Public Use
  Company Number: CO-AMGEN-COLSP2014037113

PATIENT
  Age: 60 Year
  Sex: Male
  Weight: 52 kg

DRUGS (8)
  1. ACETAMINOPHEN. [Concomitant]
     Active Substance: ACETAMINOPHEN
     Dosage: UNK
     Route: 065
     Dates: end: 20141008
  2. ENBREL [Suspect]
     Active Substance: ETANERCEPT
     Indication: RHEUMATOID ARTHRITIS
     Dosage: 50 MG, WEEKLY
     Route: 058
     Dates: start: 201404, end: 201407
  3. THIAMINA [Concomitant]
     Dosage: UNK
     Route: 065
     Dates: end: 20141008
  4. TRAMADOL [Concomitant]
     Active Substance: TRAMADOL
     Dosage: UNK
     Route: 065
     Dates: end: 20141008
  5. IBANDRONIC ACID [Concomitant]
     Active Substance: IBANDRONIC ACID
     Dosage: UNK
     Route: 065
     Dates: end: 20141008
  6. CALCIUM WITH VITAMIN D             /01233101/ [Concomitant]
     Dosage: UNK
     Route: 065
     Dates: end: 20141008
  7. METHOTREXATE [Concomitant]
     Active Substance: METHOTREXATE
     Dosage: UNK
     Route: 065
     Dates: end: 20141008
  8. OMEPRAZOL                          /00661201/ [Concomitant]
     Active Substance: OMEPRAZOLE
     Dosage: UNK
     Route: 065
     Dates: end: 20141008

REACTIONS (5)
  - Pneumonia [Fatal]
  - Cardiac arrest [Fatal]
  - Conjunctivitis [Not Recovered/Not Resolved]
  - Infarction [Fatal]
  - Influenza [Unknown]

NARRATIVE: CASE EVENT DATE: 20140507
